FAERS Safety Report 4376909-4 (Version None)
Quarter: 2004Q2

REPORT INFORMATION
  Report Type: 
  Country: None (occurrence: None)
  Receive Date: 20040608
  Receipt Date: 20040525
  Transmission Date: 20050107
  Serious: Yes (Other)
  Sender: FDA-Public Use
  Company Number: 2004215528JP

PATIENT
  Age: 5 Year
  Sex: Female

DRUGS (8)
  1. DELTA CORTE(PREDNISOLONE) TABLET [Suspect]
     Indication: GRAFT VERSUS HOST DISEASE
     Dosage: ORAL
     Route: 048
  2. SOLU-MEDROL [Suspect]
     Indication: GRAFT VERSUS HOST DISEASE
     Dosage: IV
     Route: 042
  3. TACROLIMUS(TACROLIMUS) [Suspect]
     Indication: GRAFT VERSUS HOST DISEASE
  4. CYTARABINE [Suspect]
     Indication: GRAFT VERSUS HOST DISEASE
     Dosage: 3000 MG/M2, BID, IV
     Route: 042
  5. METHOTREXATE [Suspect]
     Indication: PROPHYLAXIS
  6. CYCOSPORINE (CICLOSPORIN) [Suspect]
     Indication: PROPHYLAXIS
  7. TOTAL BODY IRRADIATION() [Suspect]
     Indication: PROPHYLAXIS
  8. ANTITHYMOCYTEIMMUNOGLOBULIN (ANTITHYMOCYTE IMMUNOGLOBULIN) [Suspect]
     Indication: GRAFT VERSUS HOST DISEASE

REACTIONS (8)
  - ABDOMINAL DISTENSION [None]
  - ABDOMINAL PAIN [None]
  - GRAFT VERSUS HOST DISEASE [None]
  - INTUSSUSCEPTION [None]
  - LUNG INFECTION PSEUDOMONAL [None]
  - PAINFUL DEFAECATION [None]
  - PNEUMATOSIS CYSTOIDES INTESTINALIS [None]
  - RESPIRATORY DISTRESS [None]
